FAERS Safety Report 11552582 (Version 2)
Quarter: 2015Q3

REPORT INFORMATION
  Report Type: Spontaneous
  Country: US (occurrence: US)
  Receive Date: 20150925
  Receipt Date: 20150928
  Transmission Date: 20151125
  Serious: Yes (Other)
  Sender: FDA-Public Use
  Company Number: US-TEVA-595397ACC

PATIENT
  Age: 34 Year
  Sex: Female

DRUGS (1)
  1. PARAGARD T 380A [Suspect]
     Active Substance: COPPER
     Indication: CONTRACEPTION
     Dates: start: 2007, end: 20150909

REACTIONS (1)
  - Medical device complication [Recovered/Resolved]

NARRATIVE: CASE EVENT DATE: 20150909
